FAERS Safety Report 21651612 (Version 1)
Quarter: 2022Q4

REPORT INFORMATION
  Report Type: Spontaneous
  Country: US (occurrence: None)
  Receive Date: 20221127
  Receipt Date: 20221127
  Transmission Date: 20230113
  Serious: No
  Sender: FDA-Public Use
  Company Number: None

PATIENT
  Age: 58 Year
  Sex: Female
  Weight: 65.25 kg

DRUGS (7)
  1. XIIDRA [Suspect]
     Active Substance: LIFITEGRAST
     Indication: Dry eye
     Dosage: OTHER QUANTITY : 1 DROP(S);?OTHER FREQUENCY : ONCE;?
     Route: 047
     Dates: start: 20220929, end: 20220929
  2. XIIDRA [Suspect]
     Active Substance: LIFITEGRAST
     Indication: Ocular rosacea
  3. WARFARIN [Concomitant]
     Active Substance: WARFARIN
  4. RESTASIS [Concomitant]
     Active Substance: CYCLOSPORINE
  5. OMEPRAZOLE [Concomitant]
     Active Substance: OMEPRAZOLE
  6. VITAMINS [Concomitant]
     Active Substance: VITAMINS
  7. CALCIUM [Concomitant]
     Active Substance: CALCIUM

REACTIONS (2)
  - Ocular hyperaemia [None]
  - Eye pruritus [None]

NARRATIVE: CASE EVENT DATE: 20220929
